FAERS Safety Report 5737007-8 (Version None)
Quarter: 2008Q2

REPORT INFORMATION
  Report Type: 
  Country: None (occurrence: None)
  Receive Date: 20080513
  Receipt Date: 20080513
  Transmission Date: 20081010
  Serious: Yes (Other)
  Sender: FDA-Public Use
  Company Number: None

PATIENT
  Age: 6 Year
  Sex: Male
  Weight: 22.6799 kg

DRUGS (1)
  1. VYVANSE [Suspect]
     Indication: ATTENTION DEFICIT/HYPERACTIVITY DISORDER
     Dosage: 30 MG ONCE DAILY PO
     Route: 048
     Dates: start: 20070902, end: 20070902

REACTIONS (6)
  - BRUXISM [None]
  - CONFUSIONAL STATE [None]
  - DYSKINESIA [None]
  - FORMICATION [None]
  - HALLUCINATION [None]
  - SPEECH DISORDER [None]
